FAERS Safety Report 10183492 (Version 2)
Quarter: 2014Q2

REPORT INFORMATION
  Report Type: Spontaneous
  Country: AU (occurrence: AU)
  Receive Date: 20140520
  Receipt Date: 20140630
  Transmission Date: 20141212
  Serious: No
  Sender: FDA-Public Use
  Company Number: AU-JNJFOC-20140505849

PATIENT
  Age: 83 Year
  Sex: Male

DRUGS (1)
  1. DUROGESIC [Suspect]
     Indication: PAIN
     Route: 062

REACTIONS (3)
  - Breakthrough pain [Not Recovered/Not Resolved]
  - Wrong technique in drug usage process [Unknown]
  - Drug effect variable [Unknown]
